FAERS Safety Report 9808654 (Version 2)
Quarter: 2014Q1

REPORT INFORMATION
  Report Type: Spontaneous
  Country: US (occurrence: US)
  Receive Date: 20140110
  Receipt Date: 20140214
  Transmission Date: 20141002
  Serious: No
  Sender: FDA-Public Use
  Company Number: US-PFIZER INC-2014006888

PATIENT
  Age: 47 Year
  Sex: Female
  Weight: 63.49 kg

DRUGS (7)
  1. PREMARIN [Suspect]
     Indication: HOT FLUSH
     Dosage: 1.25 MG, 1X/DAY
     Route: 048
     Dates: start: 201006
  2. NORCO [Concomitant]
     Indication: PAIN
     Dosage: 5-325 MG (1-2 TABLETS; EVERY 8 HOURS PRN)
     Route: 048
  3. DIAZEPAM [Concomitant]
     Dosage: 10 MG, 3X/DAY (PRN)
     Route: 048
  4. BUTORPHANOL TARTRATE [Concomitant]
     Dosage: 1 MG, EVERY 4 HRS (1 SPRAY 1 MG IN 1 NOSTRIL)
     Route: 045
  5. ALBUTEROL SULFATE [Concomitant]
     Dosage: 90 UG, EVERY 4 HRS, AS NEEDED
     Route: 045
  6. MUCINEX D [Concomitant]
     Indication: NASAL CONGESTION
     Dosage: 1 DF, 2X/DAY
     Route: 048
  7. MUCINEX D [Concomitant]
     Indication: COUGH

REACTIONS (2)
  - Irritability [Unknown]
  - Feeling abnormal [Unknown]
